FAERS Safety Report 23817245 (Version 1)
Quarter: 2024Q2

REPORT INFORMATION
  Report Type: Spontaneous
  Country: US (occurrence: None)
  Receive Date: 20240426
  Receipt Date: 20240426
  Transmission Date: 20240716
  Serious: Yes (Hospitalization)
  Sender: FDA-Public Use
  Company Number: None

PATIENT
  Age: 41 Year
  Sex: Female
  Weight: 49.9 kg

DRUGS (1)
  1. TOPAMAX [Suspect]
     Active Substance: TOPIRAMATE
     Indication: Bipolar I disorder
     Dosage: OTHER FREQUENCY : AM;?
     Route: 048
     Dates: start: 20210826

REACTIONS (6)
  - Renal tubular acidosis [None]
  - Rash [None]
  - Neck pain [None]
  - Pyrexia [None]
  - Neurosyphilis [None]
  - Metabolic acidosis [None]

NARRATIVE: CASE EVENT DATE: 20230303
